FAERS Safety Report 14317327 (Version 1)
Quarter: 2017Q4

REPORT INFORMATION
  Report Type: Spontaneous
  Country: US (occurrence: US)
  Receive Date: 20171222
  Receipt Date: 20171222
  Transmission Date: 20180321
  Serious: No
  Sender: FDA-Public Use
  Company Number: US-HORIZON-PEN-0574-2017

PATIENT
  Age: 77 Year
  Sex: Female

DRUGS (1)
  1. PENNSAID [Suspect]
     Active Substance: DICLOFENAC SODIUM
     Indication: OSTEOARTHRITIS
     Dosage: 2 PUMPS TWICE DAILY
     Route: 061
     Dates: start: 201711

REACTIONS (4)
  - Off label use [Unknown]
  - Application site pruritus [Not Recovered/Not Resolved]
  - Rash [Unknown]
  - Oral pain [Unknown]

NARRATIVE: CASE EVENT DATE: 201711
